FAERS Safety Report 8476162-6 (Version None)
Quarter: 2012Q2

REPORT INFORMATION
  Report Type: 
  Country: None (occurrence: None)
  Receive Date: 20120628
  Receipt Date: 20120620
  Transmission Date: 20120825
  Serious: Yes (Other)
  Sender: FDA-Public Use
  Company Number: ES-ELI_LILLY_AND_COMPANY-ES201206006441

PATIENT
  Sex: Female

DRUGS (1)
  1. FORTEO [Suspect]
     Dosage: UNK, UNKNOWN
     Route: 065
     Dates: start: 20111001

REACTIONS (6)
  - CONSTIPATION [None]
  - COLON OPERATION [None]
  - HYPERTENSION [None]
  - WEIGHT DECREASED [None]
  - FEELING ABNORMAL [None]
  - HYPOPHAGIA [None]
